FAERS Safety Report 6190601-5 (Version None)
Quarter: 2009Q2

REPORT INFORMATION
  Report Type: 
  Country: None (occurrence: None)
  Receive Date: 20090514
  Receipt Date: 20090311
  Transmission Date: 20091009
  Serious: Yes (Other)
  Sender: FDA-Public Use
  Company Number: US-BRISTOL-MYERS SQUIBB COMPANY-14527436

PATIENT
  Age: 61 Year
  Sex: Female
  Weight: 63 kg

DRUGS (11)
  1. IXEMPRA KIT [Suspect]
     Indication: BREAST CANCER METASTATIC
     Dosage: DECREASED DOSAGE BY 50% RECEIVED 9TH CYCLE ON 23FEB09 4TH CYCLE ON 10NOV08
     Route: 042
     Dates: start: 20080908, end: 20080908
  2. ALOXI [Concomitant]
     Indication: PREMEDICATION
  3. BENADRYL [Concomitant]
     Indication: PREMEDICATION
  4. RANITIDINE [Concomitant]
     Indication: PREMEDICATION
  5. PRILOSEC [Concomitant]
  6. PAXIL [Concomitant]
  7. RESTORIL [Concomitant]
  8. ALDACTONE [Concomitant]
  9. LORTAB [Concomitant]
  10. PERCOCET [Concomitant]
  11. PHENERGAN [Concomitant]

REACTIONS (1)
  - NEUROPATHY PERIPHERAL [None]
